FAERS Safety Report 6086908-2 (Version None)
Quarter: 2009Q1

REPORT INFORMATION
  Report Type: 
  Country: None (occurrence: None)
  Receive Date: 20090217
  Receipt Date: 20080616
  Transmission Date: 20090719
  Serious: Yes (Other)
  Sender: FDA-Public Use
  Company Number: MC200800278

PATIENT

DRUGS (2)
  1. ANGIOMAX [Suspect]
     Indication: PERCUTANEOUS CORONARY INTERVENTION
     Dates: start: 20080601
  2. ANGIOMAX [Suspect]
     Indication: ULTRASOUND DOPPLER
     Dates: start: 20080601

REACTIONS (1)
  - CORONARY ARTERY THROMBOSIS [None]
